FAERS Safety Report 8849982 (Version 1)
Quarter: 2012Q4

REPORT INFORMATION
  Report Type: 
  Country: US (occurrence: US)
  Receive Date: 20121019
  Receipt Date: 20121019
  Transmission Date: 20130627
  Serious: Yes (Hospitalization)
  Sender: FDA-Public Use
  Company Number: US-ROCHE-1139721

PATIENT
  Sex: Female

DRUGS (8)
  1. PROTROPIN [Suspect]
     Indication: HYPOTHALAMO-PITUITARY DISORDER
     Route: 058
     Dates: start: 19870921
  2. PROTROPIN [Suspect]
     Route: 058
  3. PROTROPIN [Suspect]
     Route: 058
  4. PROTROPIN [Suspect]
     Route: 058
  5. PROTROPIN [Suspect]
     Route: 058
  6. PROTROPIN [Suspect]
     Route: 058
  7. THYROXINE [Concomitant]
     Route: 065
  8. THYROXINE [Concomitant]
     Route: 065

REACTIONS (11)
  - Hypothyroidism [Unknown]
  - Learning disorder [Unknown]
  - Facial bones fracture [Recovered/Resolved]
  - Alopecia [Unknown]
  - Onychoclasis [Unknown]
  - Hirsutism [Unknown]
  - Back pain [Unknown]
  - Constipation [Unknown]
  - Fall [Unknown]
  - Jaw fracture [Unknown]
  - Foot deformity [Unknown]
